FAERS Safety Report 20901487 (Version 1)
Quarter: 2022Q2

REPORT INFORMATION
  Report Type: Spontaneous
  Country: US (occurrence: None)
  Receive Date: 20220601
  Receipt Date: 20220601
  Transmission Date: 20220721
  Serious: No
  Sender: FDA-Public Use
  Company Number: None

PATIENT
  Age: 73 Year
  Sex: Female
  Weight: 112.5 kg

DRUGS (1)
  1. AFRIN [Suspect]
     Active Substance: OXYMETAZOLINE
     Indication: Multiple allergies
     Dosage: OTHER STRENGTH : SPRAY;?OTHER QUANTITY : 1 SPRAY(S);?OTHER FREQUENCY : ONE SPRAY EVERY 3;?OTHER ROUT
     Route: 050
     Dates: end: 20220529

REACTIONS (1)
  - Vision blurred [None]

NARRATIVE: CASE EVENT DATE: 20220530
